FAERS Safety Report 15402920 (Version 1)
Quarter: 2018Q3

REPORT INFORMATION
  Report Type: Spontaneous
  Country: US (occurrence: US)
  Receive Date: 20180917
  Receipt Date: 20180917
  Transmission Date: 20181010
  Serious: Yes (Disabling)
  Sender: FDA-Public Use
  Company Number: None

PATIENT
  Age: 65 Year
  Sex: Male
  Weight: 108 kg

DRUGS (12)
  1. ABILIFY [Suspect]
     Active Substance: ARIPIPRAZOLE
     Indication: BIPOLAR DISORDER
     Route: 048
     Dates: start: 20080923, end: 20170623
  2. GLUCOPHAGE [Concomitant]
     Active Substance: METFORMIN HYDROCHLORIDE
  3. ZETIA (FOR CHOLESTEROL) [Concomitant]
  4. TRESIBA (INSULIN) [Concomitant]
  5. A MOTORIZED WHEEL CHAIR [Concomitant]
  6. JANUVIA [Concomitant]
     Active Substance: SITAGLIPTIN PHOSPHATE
  7. BABY ASPIRIN [Concomitant]
     Active Substance: ASPIRIN
  8. ABILIFY [Suspect]
     Active Substance: ARIPIPRAZOLE
     Indication: OBSESSIVE-COMPULSIVE DISORDER
     Route: 048
     Dates: start: 20080923, end: 20170623
  9. ZANTAC [Concomitant]
     Active Substance: RANITIDINE HYDROCHLORIDE
  10. PROZAC [Concomitant]
     Active Substance: FLUOXETINE HYDROCHLORIDE
  11. ZYPREXA [Concomitant]
     Active Substance: OLANZAPINE
  12. CPAP MACHINE [Concomitant]

REACTIONS (4)
  - Tremor [None]
  - Loss of personal independence in daily activities [None]
  - Tardive dyskinesia [None]
  - Akathisia [None]

NARRATIVE: CASE EVENT DATE: 20080923
